FAERS Safety Report 23077406 (Version 3)
Quarter: 2025Q1

REPORT INFORMATION
  Report Type: Report from Study
  Country: DE (occurrence: DE)
  Receive Date: 20231018
  Receipt Date: 20250121
  Transmission Date: 20250409
  Serious: Yes (Hospitalization)
  Sender: ROCHE
  Company Number: DE-ROCHE-3223715

PATIENT
  Age: 57 Year
  Sex: Male

DRUGS (2)
  1. MABTHERA [Suspect]
     Active Substance: RITUXIMAB
     Indication: Neuromyelitis optica spectrum disorder
     Route: 041
     Dates: start: 20211001
  2. ENSPRYNG [Suspect]
     Active Substance: SATRALIZUMAB-MWGE
     Indication: Neuromyelitis optica spectrum disorder
     Route: 065
     Dates: start: 20211001

REACTIONS (5)
  - Off label use [Unknown]
  - Musculoskeletal stiffness [Recovering/Resolving]
  - Urinary tract infection [Recovered/Resolved]
  - Dyspnoea [Recovered/Resolved]
  - Respiratory tract infection [Recovered/Resolved]

NARRATIVE: CASE EVENT DATE: 20211001
